FAERS Safety Report 23037727 (Version 1)
Quarter: 2023Q4

REPORT INFORMATION
  Report Type: Spontaneous
  Country: FR (occurrence: FR)
  Receive Date: 20231006
  Receipt Date: 20231006
  Transmission Date: 20240109
  Serious: Yes (Death)
  Sender: FDA-Public Use
  Company Number: None

PATIENT
  Age: 70 Year
  Sex: Male
  Weight: 70 kg

DRUGS (10)
  1. ALIMTA [Suspect]
     Active Substance: PEMETREXED DISODIUM
     Indication: Lung adenocarcinoma
     Dosage: 1 DOSAGE FORM, UNKNOWN
     Route: 042
     Dates: start: 202209
  2. CARBOPLATIN [Suspect]
     Active Substance: CARBOPLATIN
     Indication: Lung adenocarcinoma
     Dosage: 1 DOSAGE FORM, UNKNOWN
     Route: 042
     Dates: start: 202209
  3. KEYTRUDA [Suspect]
     Active Substance: PEMBROLIZUMAB
     Indication: Lung adenocarcinoma
     Dosage: 1 DOSAGE FORM, UNKNOWN
     Route: 042
     Dates: start: 202209
  4. SKENAN [Concomitant]
     Active Substance: MORPHINE SULFATE
     Indication: Cancer pain
     Dosage: 10 MG, BID
     Route: 048
  5. INNOHEP [Concomitant]
     Active Substance: TINZAPARIN SODIUM
     Indication: Atrial fibrillation
     Route: 058
  6. MORPHINE SULFATE [Concomitant]
     Active Substance: MORPHINE SULFATE
     Indication: Cancer pain
     Dosage: 5 MG, UNKNOWN
     Route: 048
  7. LEVOTHYROXINE [Concomitant]
     Active Substance: LEVOTHYROXINE
     Indication: Thyroidectomy
     Route: 048
  8. PREDNISOLONE [Concomitant]
     Active Substance: PREDNISOLONE
     Indication: Lung adenocarcinoma
     Route: 048
  9. CALCIUM CARBONATE [Concomitant]
     Active Substance: CALCIUM CARBONATE
     Indication: Mineral supplementation
     Route: 048
  10. VITAMIN D3 [Concomitant]
     Active Substance: CHOLECALCIFEROL
     Indication: Vitamin supplementation
     Route: 048

REACTIONS (1)
  - Ischaemic stroke [Fatal]

NARRATIVE: CASE EVENT DATE: 20230912
